FAERS Safety Report 19222228 (Version 1)
Quarter: 2021Q2

REPORT INFORMATION
  Report Type: Spontaneous
  Country: US (occurrence: US)
  Receive Date: 20210506
  Receipt Date: 20210506
  Transmission Date: 20210717
  Serious: No
  Sender: FDA-Public Use
  Company Number: None

PATIENT
  Age: 51 Year
  Sex: Male

DRUGS (2)
  1. VARDENAFIL (VARDENAFIL HCL 20MG TAB) [Suspect]
     Active Substance: VARDENAFIL HYDROCHLORIDE
     Indication: ERECTILE DYSFUNCTION
     Route: 048
     Dates: start: 20210124, end: 20210124
  2. SILDENAFIL. [Suspect]
     Active Substance: SILDENAFIL
     Route: 048
     Dates: start: 20210123

REACTIONS (3)
  - Hypotension [None]
  - Dizziness [None]
  - Drug ineffective [None]

NARRATIVE: CASE EVENT DATE: 20210127
